FAERS Safety Report 7736602-4 (Version None)
Quarter: 2011Q3

REPORT INFORMATION
  Report Type: 
  Country: None (occurrence: None)
  Receive Date: 20110902
  Receipt Date: 20110830
  Transmission Date: 20111222
  Serious: Yes (Hospitalization)
  Sender: FDA-Public Use
  Company Number: PYR-11-26

PATIENT
  Age: 38 Year
  Sex: Male

DRUGS (3)
  1. PYRAZINAMIDE [Suspect]
  2. ISONIAZID [Concomitant]
  3. RIFAMPICIN [Concomitant]

REACTIONS (1)
  - ACUTE HEPATIC FAILURE [None]
